FAERS Safety Report 6843751-1 (Version None)
Quarter: 2010Q3

REPORT INFORMATION
  Report Type: 
  Country: None (occurrence: None)
  Receive Date: 20100715
  Receipt Date: 20100705
  Transmission Date: 20110219
  Serious: Yes (Other)
  Sender: FDA-Public Use
  Company Number: CA-JNJFOC-20100701883

PATIENT
  Sex: Female
  Weight: 157 kg

DRUGS (15)
  1. REMICADE [Suspect]
     Indication: RHEUMATOID ARTHRITIS
     Route: 042
  2. REMICADE [Suspect]
     Route: 042
  3. TRANDOLAPRIL [Concomitant]
  4. HYDROCHLOROTHIAZIDE [Concomitant]
  5. PLAQUENIL [Concomitant]
  6. TRAMADOL HCL [Concomitant]
  7. FOLIC ACID [Concomitant]
  8. VITAMIN B-12 [Concomitant]
     Route: 050
  9. ARAVA [Concomitant]
  10. ZANTAC [Concomitant]
  11. FLOVENT [Concomitant]
  12. MULTI-VITAMINS [Concomitant]
  13. ATROVENT [Concomitant]
  14. CALCIUM [Concomitant]
  15. VITAMIN D [Concomitant]

REACTIONS (2)
  - HYPOAESTHESIA [None]
  - PAIN IN EXTREMITY [None]
